FAERS Safety Report 22972517 (Version 3)
Quarter: 2023Q4

REPORT INFORMATION
  Report Type: Spontaneous
  Country: CA (occurrence: CA)
  Receive Date: 20230922
  Receipt Date: 20231116
  Transmission Date: 20240110
  Serious: Yes (Hospitalization, Other)
  Sender: FDA-Public Use
  Company Number: CA-PFIZER INC-202300234991

PATIENT
  Age: 62 Year
  Sex: Female
  Weight: 55 kg

DRUGS (5)
  1. ABRILADA [Suspect]
     Active Substance: ADALIMUMAB-AFZB
     Indication: Colitis ulcerative
     Dosage: 160 MG, WEEK 0 - 160 MG, WEEK 2 - 80 MG, THEN 40 MG EVERY OTHER WEEK STARTING WEEK 4
     Route: 058
     Dates: start: 20230612
  2. ABRILADA [Suspect]
     Active Substance: ADALIMUMAB-AFZB
     Dosage: 80 MG, WEEK 0 - 160 MG, WEEK 2 - 80 MG, THEN 40 MG EVERY OTHER WEEK STARTING WEEK 4
     Route: 058
  3. ABRILADA [Suspect]
     Active Substance: ADALIMUMAB-AFZB
     Dosage: 40 MG , WEEK 0 - 160 MG, WEEK 2 - 80 MG, THEN 40 MG EVERY OTHER WEEK STARTING WEEK 4
     Route: 058
     Dates: start: 20230710
  4. ABRILADA [Suspect]
     Active Substance: ADALIMUMAB-AFZB
     Dosage: 40 MG , WEEK 0 - 160 MG, WEEK 2 - 80 MG, THEN 40 MG EVERY OTHER WEEK STARTING WEEK 4
     Route: 058
     Dates: start: 20230822
  5. ABRILADA [Suspect]
     Active Substance: ADALIMUMAB-AFZB
     Dosage: 40 MG, 1 WEEK AND 3 DAYS
     Route: 058
     Dates: start: 20230901, end: 20230901

REACTIONS (9)
  - Colitis ulcerative [Unknown]
  - Drug specific antibody present [Not Recovered/Not Resolved]
  - Blood glucose increased [Unknown]
  - Contusion [Unknown]
  - Pain [Unknown]
  - Nausea [Unknown]
  - Diarrhoea [Unknown]
  - Malaise [Unknown]
  - Off label use [Unknown]

NARRATIVE: CASE EVENT DATE: 20230101
